FAERS Safety Report 21374710 (Version 1)
Quarter: 2022Q3

REPORT INFORMATION
  Report Type: Spontaneous
  Country: CN (occurrence: CN)
  Receive Date: 20220926
  Receipt Date: 20220926
  Transmission Date: 20221027
  Serious: Yes (Other)
  Sender: FDA-Public Use
  Company Number: None

PATIENT
  Age: 65 Year
  Sex: Male
  Weight: 65 kg

DRUGS (2)
  1. CYCLOPHOSPHAMIDE [Suspect]
     Active Substance: CYCLOPHOSPHAMIDE
     Indication: B-cell lymphoma
     Dosage: 0.5 G, QD (DILUTED WITH 0.9% SODIUM CHLORIDE INJECTION) START TIME: 08:28 HRS
     Route: 041
     Dates: start: 20220409, end: 20220410
  2. SODIUM CHLORIDE [Suspect]
     Active Substance: SODIUM CHLORIDE
     Indication: Vehicle solution use
     Dosage: 100 ML, QD (DILUTED WITH CYCLOPHOSPHAMIDE) START TIME: 08:28 HRS
     Route: 041
     Dates: start: 20220409, end: 20220410

REACTIONS (2)
  - Gastrooesophageal reflux disease [Recovered/Resolved]
  - Nausea [Recovered/Resolved]

NARRATIVE: CASE EVENT DATE: 20220410
